FAERS Safety Report 10642525 (Version 2)
Quarter: 2015Q1

REPORT INFORMATION
  Report Type: Spontaneous
  Country: US (occurrence: None)
  Receive Date: 20141208
  Receipt Date: 20150306
  Transmission Date: 20150720
  Serious: Yes (Hospitalization)
  Sender: FDA-Public Use
  Company Number: US-H14001-14-01722

PATIENT
  Age: 59 Year
  Sex: Female
  Weight: 81.3 kg

DRUGS (24)
  1. MIRALAX (MACROGOL) (UNKNOWN) (MACROGOL) [Concomitant]
  2. ONDANSETRON HCL (ONDANSETRON HYDROCHLORIDE) [Concomitant]
     Active Substance: ONDANSETRON HYDROCHLORIDE
  3. PROCHLORPERAZINE MALEATE (PROCHLORPERAZINE MALEATE) (UNKNOWN) (PROCHLORPERAZINE MALEATE) [Concomitant]
  4. IRINOTECAN HCL [Suspect]
     Active Substance: IRINOTECAN HYDROCHLORIDE
     Indication: PANCREATIC CARCINOMA
     Dosage: (331 MG, 1 IN 2 WK) (NOT OTHERWISE SPECIFIED)
     Route: 042
     Dates: start: 20140801, end: 20140903
  5. LIDOCAINE PRILOCAINE (EMLA /00675501/) (UNKNOWN) (LIDOCAINE, PRILOCAINE) [Concomitant]
  6. LISINOPRIL. [Concomitant]
     Active Substance: LISINOPRIL
  7. LYRICA (PREGABALIN) (UNKNOWN) (PREGABALIN) [Concomitant]
  8. OXALIPLATIN. [Suspect]
     Active Substance: OXALIPLATIN
     Indication: PANCREATIC CARCINOMA
     Dosage: (156 MG, 1 IN 2 WK), (NOT OTHERWISE SPECIFIED)
     Route: 042
     Dates: start: 20140801, end: 20140903
  9. MARINOL [Concomitant]
     Active Substance: DRONABINOL
  10. LOPERAMIDE HCL (LOPERAMIDE HYDROCHLORIDE) [Concomitant]
  11. PRILOSEC (OMEPRAZOLE) [Concomitant]
     Active Substance: OMEPRAZOLE MAGNESIUM
  12. SENNA (SENNA ALEXANDRINA) (UNKNOWN) (SENNA ALEXANDRINA) [Concomitant]
  13. SIMETHICONE (SIMETHICONE) (UNKNOWN) (SIMETHICONE) [Concomitant]
  14. FLUOROURACIL. [Suspect]
     Active Substance: FLUOROURACIL
     Indication: PANCREATIC CARCINOMA
     Dosage: (4416 MG, 1 IN 2 WK) (NOT OTHERWISE SPECIFIED)
     Route: 042
     Dates: start: 20140801, end: 20140903
  15. VITAMIN D (ERGOCALCIFEROL) (UNKNOWN) (ERGOCALCIFEROL) [Concomitant]
  16. LEUCOVORIN [Suspect]
     Active Substance: LEUCOVORIN
     Indication: PANCREATIC CARCINOMA
     Dosage: (736 MG, 1 IN 2 WK) (NOT OTHERWISE SPECIFIED)
     Route: 042
     Dates: start: 20140801, end: 20140903
  17. VITAMIN B-6 (PYRIDOXINE HYDROCHLORIDE) (UNKNOWN) (PYRIDOXINE HYDROCHLORIDE) [Concomitant]
  18. MAGNESIUM OXIDE. [Concomitant]
     Active Substance: MAGNESIUM OXIDE
  19. LOMOTIL (LOMOTIL) (UNKNOWN) (ATROPINE SULFATE, DIPHENOXYLATE HYDROCHLORIDE) [Concomitant]
  20. OXYCONTIN (OXYCODONE HYDROCHLORIDE) (UNKNOWN) (OXYCODONE HYDROCHLORIDE) [Concomitant]
  21. NEUPOGEN (FILGRASTIM) [Concomitant]
     Active Substance: FILGRASTIM
  22. ACETAMINOPHEN (PARACETAMOL) (UNKNOWN) (PARACETAMOL) [Concomitant]
     Active Substance: ACETAMINOPHEN
  23. OXYCODONE (OXYCODONE) (UNKNOWN) (OXYCODONE) [Concomitant]
     Active Substance: OXYCODONE
  24. POTASSIUM CHLORIDE (POTASSIUM CHLORIDE) (UNKNOWN) (POTASSIUM CHLORIDE) [Concomitant]

REACTIONS (6)
  - Pyrexia [None]
  - Alanine aminotransferase increased [None]
  - Aspartate aminotransferase increased [None]
  - Abdominal pain [None]
  - Vomiting [None]
  - Blood alkaline phosphatase increased [None]

NARRATIVE: CASE EVENT DATE: 2014
